FAERS Safety Report 13380179 (Version 3)
Quarter: 2017Q2

REPORT INFORMATION
  Report Type: Spontaneous
  Country: US (occurrence: US)
  Receive Date: 20170328
  Receipt Date: 20170525
  Transmission Date: 20170830
  Serious: Yes (Other)
  Sender: FDA-Public Use
  Company Number: US-009507513-1702USA012219

PATIENT
  Age: 27 Year
  Sex: Female
  Weight: 86.62 kg

DRUGS (9)
  1. IRON (UNSPECIFIED) (+) MINERALS (UNSPECIFIED) (+) VITAMINS (UNSPECIFIE [Suspect]
     Active Substance: IRON\MINERALS\VITAMINS
     Dosage: 1 CAPSULE DAILY
     Route: 048
  2. NEXPLANON [Suspect]
     Active Substance: ETONOGESTREL
     Indication: CONTRACEPTION
     Dosage: 68 MG, UNK
     Route: 059
     Dates: start: 20170210, end: 20170301
  3. PROAIR HFA [Concomitant]
     Active Substance: ALBUTEROL SULFATE
     Dosage: 2 PUFF Q4H, PRN AS NEEDED
     Route: 055
  4. LAMICTAL [Concomitant]
     Active Substance: LAMOTRIGINE
     Dosage: 200 MG ONCE DAILY, ORAL, INCLUDE EXTENDED RELEASE IN DESCRIPTION
  5. VITAMINS (UNSPECIFIED) [Concomitant]
     Active Substance: VITAMINS
     Dosage: 1 TABLET DAILY
     Route: 048
  6. FOLIC ACID. [Suspect]
     Active Substance: FOLIC ACID
  7. KLONOPIN [Concomitant]
     Active Substance: CLONAZEPAM
     Indication: ANXIETY
     Dosage: 0.5MG TID, PRN
     Route: 048
  8. PROBIOTICS (UNSPECIFIED) [Concomitant]
     Active Substance: PROBIOTICS NOS
     Dosage: 1 PACKET ONE WEEKLY AS DIRECTED
  9. DOCUSATE SODIUM. [Suspect]
     Active Substance: DOCUSATE SODIUM
     Route: 048

REACTIONS (3)
  - Implant site rash [Recovered/Resolved]
  - Implant site pruritus [Recovered/Resolved]
  - Vaginal haemorrhage [Not Recovered/Not Resolved]

NARRATIVE: CASE EVENT DATE: 20170210
